FAERS Safety Report 16735823 (Version 2)
Quarter: 2019Q3

REPORT INFORMATION
  Report Type: Spontaneous
  Country: US (occurrence: US)
  Receive Date: 20190823
  Receipt Date: 20190827
  Transmission Date: 20191005
  Serious: Yes (Hospitalization)
  Sender: FDA-Public Use
  Company Number: US-UNITED THERAPEUTICS-UNT-2019-013947

PATIENT
  Age: 77 Year
  Sex: Female
  Weight: 72.38 kg

DRUGS (2)
  1. REMODULIN [Suspect]
     Active Substance: TREPROSTINIL
     Indication: PULMONARY ARTERIAL HYPERTENSION
     Dosage: 0.03 ?G/KG, CONTINUING
     Route: 058
  2. REMODULIN [Suspect]
     Active Substance: TREPROSTINIL
     Dosage: 0.029 ?G/KG, CONTINUING
     Route: 058
     Dates: start: 20190816

REACTIONS (6)
  - Diarrhoea [Unknown]
  - Headache [Unknown]
  - Slow response to stimuli [Unknown]
  - Blood pressure decreased [Recovering/Resolving]
  - Pallor [Unknown]
  - Dizziness postural [Unknown]

NARRATIVE: CASE EVENT DATE: 20190819
